FAERS Safety Report 13972190 (Version 2)
Quarter: 2018Q3

REPORT INFORMATION
  Report Type: Spontaneous
  Country: US (occurrence: US)
  Receive Date: 20170914
  Receipt Date: 20180913
  Transmission Date: 20181010
  Serious: No
  Sender: FDA-Public Use
  Company Number: US-ASTELLAS-2016US042004

PATIENT
  Age: 72 Year
  Sex: Male

DRUGS (1)
  1. XTANDI [Suspect]
     Active Substance: ENZALUTAMIDE
     Indication: PROSTATE CANCER
     Route: 048
     Dates: start: 20160909

REACTIONS (14)
  - Tremor [Not Recovered/Not Resolved]
  - Hyperhidrosis [Not Recovered/Not Resolved]
  - Haematochezia [Recovered/Resolved]
  - Lacrimation increased [Not Recovered/Not Resolved]
  - Salivary hypersecretion [Recovered/Resolved]
  - Red blood cell abnormality [Not Recovered/Not Resolved]
  - Joint swelling [Recovered/Resolved]
  - Hypoaesthesia [Not Recovered/Not Resolved]
  - Arthralgia [Recovered/Resolved]
  - Tooth loss [Recovered/Resolved]
  - Prostatic specific antigen increased [Unknown]
  - Haematuria [Recovered/Resolved]
  - Dysphonia [Not Recovered/Not Resolved]
  - Dry mouth [Recovered/Resolved]

NARRATIVE: CASE EVENT DATE: 201709
